FAERS Safety Report 15580312 (Version 1)
Quarter: 2018Q4

REPORT INFORMATION
  Report Type: Spontaneous
  Country: US (occurrence: US)
  Receive Date: 20181102
  Receipt Date: 20181102
  Transmission Date: 20190205
  Serious: Yes (Other)
  Sender: FDA-Public Use
  Company Number: US-SA-2018SA300887

PATIENT
  Age: 39 Year
  Sex: Female
  Weight: 95.25 kg

DRUGS (6)
  1. DUPIXENT [Suspect]
     Active Substance: DUPILUMAB
     Indication: DERMATITIS ATOPIC
     Dosage: 300 MG, Q2M
     Dates: start: 20170515, end: 20171220
  2. IBUPROFEN. [Concomitant]
     Active Substance: IBUPROFEN
     Indication: FOOT FRACTURE
     Dosage: 500 MG, QW
     Dates: start: 20171022, end: 20171121
  3. PREDNISONE. [Concomitant]
     Active Substance: PREDNISONE
     Indication: ECZEMA
  4. PREDNISONE. [Concomitant]
     Active Substance: PREDNISONE
     Indication: DERMATITIS ATOPIC
     Dosage: 1 DF, QD
     Route: 048
     Dates: start: 20170501, end: 20170515
  5. VOLTAREN [DICLOFENAC] [Concomitant]
     Active Substance: DICLOFENAC SODIUM
     Indication: FOOT FRACTURE
     Dosage: UNK UNK, Q3D
     Route: 061
     Dates: start: 20171022, end: 20171121
  6. TDAP [Concomitant]
     Active Substance: TETANUS TOXOID, REDUCED DIPHTHERIA TOXOID AND ACELLULAR PERTUSSIS VACCINE ADSORBED, TDAP
     Dosage: 1 DF, QD
     Route: 030
     Dates: start: 20100107, end: 20100107

REACTIONS (3)
  - Abortion spontaneous [Unknown]
  - Exposure during pregnancy [Unknown]
  - Foot fracture [Unknown]

NARRATIVE: CASE EVENT DATE: 20170915
